FAERS Safety Report 9751969 (Version 1)
Quarter: 2013Q4

REPORT INFORMATION
  Report Type: Spontaneous
  Country: US (occurrence: None)
  Receive Date: 20131211
  Receipt Date: 20131211
  Transmission Date: 20140711
  Serious: No
  Sender: FDA-Public Use
  Company Number: None

PATIENT
  Age: 52 Year
  Sex: Male
  Weight: 77.11 kg

DRUGS (13)
  1. GABAPENTIN [Suspect]
     Indication: BACK PAIN
     Dosage: 3 PILLS TID ORAL
     Route: 048
     Dates: start: 20110810, end: 20131206
  2. GABAPENTIN [Suspect]
     Indication: ANXIETY
     Dosage: 3 PILLS TID ORAL
     Route: 048
     Dates: start: 20110810, end: 20131206
  3. OMEPRAZOLE [Concomitant]
  4. NICOTINE [Concomitant]
  5. MELOXICAM [Concomitant]
  6. ACETAMINOPHEN [Concomitant]
  7. FOLIC ACID [Concomitant]
  8. QUETIAPINE [Concomitant]
  9. NALTREXONE [Concomitant]
  10. BUSPIRONE [Concomitant]
  11. LISINOPRIL [Concomitant]
  12. BENZONATATE [Concomitant]
  13. METOPROLOL [Concomitant]

REACTIONS (1)
  - Nystagmus [None]
